FAERS Safety Report 7892994-7 (Version None)
Quarter: 2011Q4

REPORT INFORMATION
  Report Type: 
  Country: None (occurrence: None)
  Receive Date: 20111104
  Receipt Date: 20111021
  Transmission Date: 20120403
  Serious: Yes (Other)
  Sender: FDA-Public Use
  Company Number: DE-UCBSA-044060

PATIENT
  Sex: Female

DRUGS (4)
  1. ISOZID COMP [Concomitant]
     Indication: ANTIBIOTIC PROPHYLAXIS
     Dates: start: 20110321
  2. CERTOLIZUMAB PEGOL [Suspect]
     Indication: RHEUMATOID ARTHRITIS
     Dosage: UNKNOWN DOSE
     Route: 058
     Dates: start: 20110815, end: 20110912
  3. PREDNISOLONE [Concomitant]
     Indication: RHEUMATOID ARTHRITIS
     Dosage: 10-5 MG ONCE DAILY
     Dates: start: 20101117
  4. CALCIVIT D FORTE [Concomitant]
     Indication: STEROID THERAPY
     Dates: start: 20101201

REACTIONS (7)
  - HEARING IMPAIRED [None]
  - VERTIGO [None]
  - HEADACHE [None]
  - ASTHENIA [None]
  - EYE DISORDER [None]
  - HYPERTENSION [None]
  - DIZZINESS [None]
